FAERS Safety Report 6490769-7 (Version None)
Quarter: 2009Q4

REPORT INFORMATION
  Report Type: 
  Country: None (occurrence: None)
  Receive Date: 20091211
  Receipt Date: 20091202
  Transmission Date: 20100525
  Serious: Yes (Other)
  Sender: FDA-Public Use
  Company Number: JP-BRISTOL-MYERS SQUIBB COMPANY-14853162

PATIENT
  Age: 32 Year
  Sex: Male

DRUGS (7)
  1. ABILIFY [Suspect]
     Indication: PSYCHOMOTOR HYPERACTIVITY
     Dosage: ABILIFY TABS STRENGTH: 6MG
     Route: 048
     Dates: start: 20091028, end: 20091029
  2. RIVOTRIL [Concomitant]
  3. ROHYPNOL [Concomitant]
     Dosage: FORMULATION: TABLET
     Dates: start: 20071114
  4. GLYCERIN [Concomitant]
     Dates: start: 20090407
  5. LECICARBON [Concomitant]
     Dates: start: 20090407
  6. SEROQUEL [Concomitant]
     Dosage: FORM: TABLET
  7. PAXIL [Concomitant]
     Dosage: FORM: TABLET

REACTIONS (1)
  - HICCUPS [None]
